FAERS Safety Report 14232285 (Version 1)
Quarter: 2017Q4

REPORT INFORMATION
  Report Type: Spontaneous
  Country: FR (occurrence: FR)
  Receive Date: 20171128
  Receipt Date: 20171128
  Transmission Date: 20180321
  Serious: Yes (Hospitalization, Other)
  Sender: FDA-Public Use
  Company Number: FR-PFIZER INC-2017504429

PATIENT
  Age: 80 Year
  Sex: Male

DRUGS (13)
  1. DIFFU K [Concomitant]
     Active Substance: POTASSIUM CHLORIDE
     Dosage: 600 MG, UNK
     Route: 048
  2. NOVORAPID [Concomitant]
     Active Substance: INSULIN ASPART
     Dosage: 100 IU/ML, 3X/DAY
     Route: 058
  3. LEVEMIR [Concomitant]
     Active Substance: INSULIN DETEMIR
     Dosage: 20 U MORNING AND 22 U EVENING
     Route: 058
  4. OGAST [Concomitant]
     Active Substance: LANSOPRAZOLE
     Route: 048
  5. TRIATEC /00885601/ [Concomitant]
     Active Substance: RAMIPRIL
     Dosage: 10 MG, 1X/DAY
     Route: 048
  6. TAHOR [Concomitant]
     Active Substance: ATORVASTATIN CALCIUM
     Dosage: 20 MG, 1X/DAY
     Route: 048
  7. RIFADINE /00146901/ [Suspect]
     Active Substance: RIFAMPIN
     Indication: INFECTION
     Dosage: 300 MG, 3X/DAY
     Route: 048
     Dates: start: 20161126, end: 20170112
  8. OXYNORMORO [Concomitant]
     Active Substance: OXYCODONE HYDROCHLORIDE
     Dosage: 5 MG, 3X/DAY
     Route: 048
     Dates: start: 20161126, end: 20170105
  9. ZYVOXID [Suspect]
     Active Substance: LINEZOLID
     Indication: INFECTION
     Dosage: 600 MG, 2X/DAY
     Route: 048
     Dates: start: 20161126, end: 20170112
  10. LASILIX SPECIAL /00032601/ [Concomitant]
     Active Substance: FUROSEMIDE
     Dosage: 0.25 DF, 1X/DAY
  11. BISOCE [Concomitant]
     Active Substance: BISOPROLOL
     Dosage: 1.25 MG, 1X/DAY
     Route: 048
  12. KARDEGIC [Concomitant]
     Active Substance: ASPIRIN DL-LYSINE
     Dosage: 160 MG, 1X/DAY
     Route: 048
  13. DAFALGAN [Concomitant]
     Active Substance: ACETAMINOPHEN
     Dosage: 100 MG, 4X/DAY
     Route: 048
     Dates: start: 20161126

REACTIONS (5)
  - Anaemia [Recovered/Resolved]
  - Platelet count increased [Unknown]
  - Platelet count decreased [Unknown]
  - C-reactive protein increased [Unknown]
  - White blood cell count increased [Unknown]

NARRATIVE: CASE EVENT DATE: 20161205
